FAERS Safety Report 13050020 (Version 1)
Quarter: 2016Q4

REPORT INFORMATION
  Report Type: Other
  Country: FR (occurrence: FR)
  Receive Date: 20161221
  Receipt Date: 20161221
  Transmission Date: 20170207
  Serious: Yes (Other)
  Sender: FDA-Public Use
  Company Number: FR-HIKMA PHARMACEUTICALS CO. LTD-2016FR013048

PATIENT

DRUGS (6)
  1. INFLECTRA [Suspect]
     Active Substance: INFLIXIMAB-DYYB
     Indication: ANKYLOSING SPONDYLITIS
     Dosage: 5 MG/KG, SINGLE
     Route: 058
     Dates: start: 20160708
  2. FENOFIBRATE. [Concomitant]
     Active Substance: FENOFIBRATE
  3. BISOPROLOL [Concomitant]
     Active Substance: BISOPROLOL
  4. PANTOPRAZOLE [Concomitant]
     Active Substance: PANTOPRAZOLE SODIUM
  5. TRAVATAN [Concomitant]
     Active Substance: TRAVOPROST
  6. LEVOPHTA [Concomitant]

REACTIONS (6)
  - Oesophagitis [Unknown]
  - Drug ineffective [Not Recovered/Not Resolved]
  - Vocal cord inflammation [Unknown]
  - Epistaxis [Recovered/Resolved]
  - Oral herpes [Recovered/Resolved]
  - Laryngeal inflammation [Unknown]

NARRATIVE: CASE EVENT DATE: 201607
